FAERS Safety Report 18380010 (Version 1)
Quarter: 2020Q4

REPORT INFORMATION
  Report Type: Spontaneous
  Country: US (occurrence: US)
  Receive Date: 20201013
  Receipt Date: 20201013
  Transmission Date: 20210114
  Serious: Yes (Disabling, Other)
  Sender: FDA-Public Use
  Company Number: US-PURDUE-USA-2020-0170003

PATIENT
  Sex: Male

DRUGS (2)
  1. PERCOCET                           /00446701/ [Suspect]
     Active Substance: ACETAMINOPHEN\OXYCODONE HYDROCHLORIDE\OXYCODONE TEREPHTHALATE
     Indication: PRODUCT USED FOR UNKNOWN INDICATION
     Dosage: UNK
     Route: 048
  2. OXYCONTIN [Suspect]
     Active Substance: OXYCODONE HYDROCHLORIDE
     Indication: PRODUCT USED FOR UNKNOWN INDICATION
     Dosage: UNK
     Route: 048

REACTIONS (15)
  - Spinal fracture [Unknown]
  - Upper limb fracture [Unknown]
  - Mental impairment [Unknown]
  - Emotional distress [Unknown]
  - Drug dependence [Unknown]
  - Rib fracture [Unknown]
  - Injury [Unknown]
  - Drug withdrawal syndrome [Unknown]
  - Alcohol abuse [Unknown]
  - Road traffic accident [Unknown]
  - Disability [Unknown]
  - Syncope [Unknown]
  - Pain [Unknown]
  - Aggression [Unknown]
  - Product prescribing issue [Unknown]
